FAERS Safety Report 14536556 (Version 5)
Quarter: 2018Q1

REPORT INFORMATION
  Report Type: Report from Study
  Country: IL (occurrence: IL)
  Receive Date: 20180215
  Receipt Date: 20180314
  Transmission Date: 20180509
  Serious: Yes (Hospitalization, Other)
  Sender: FDA-Public Use
  Company Number: IL-SA-2018SA031217

PATIENT
  Age: 45 Year
  Sex: Female

DRUGS (7)
  1. APIDRA [Suspect]
     Active Substance: INSULIN GLULISINE
     Dosage: DOSE:16 UNIT(S)
     Route: 058
     Dates: start: 20171224
  2. SOLOSTAR [Suspect]
     Active Substance: DEVICE
  3. APIDRA [Suspect]
     Active Substance: INSULIN GLULISINE
     Dosage: DOSE:14 UNIT(S)
     Route: 058
     Dates: start: 201801
  4. TOUJEO [Suspect]
     Active Substance: INSULIN GLARGINE
     Route: 051
     Dates: start: 2017
  5. TOUJEO [Suspect]
     Active Substance: INSULIN GLARGINE
     Dosage: DOSE:50 UNIT(S)
     Route: 051
  6. APIDRA [Suspect]
     Active Substance: INSULIN GLULISINE
     Dosage: DOSE:20 UNIT(S)
     Route: 058
     Dates: start: 201801
  7. SOLOSTAR [Suspect]
     Active Substance: DEVICE
     Dates: start: 2017

REACTIONS (17)
  - Localised infection [Not Recovered/Not Resolved]
  - Wound [Unknown]
  - Burning sensation [Not Recovered/Not Resolved]
  - Vulvovaginal discomfort [Not Recovered/Not Resolved]
  - Abdominal pain [Not Recovered/Not Resolved]
  - Blood glucose increased [Not Recovered/Not Resolved]
  - Headache [Not Recovered/Not Resolved]
  - Pollakiuria [Not Recovered/Not Resolved]
  - Condition aggravated [Not Recovered/Not Resolved]
  - Blood glucose increased [Not Recovered/Not Resolved]
  - Pelvic fracture [Not Recovered/Not Resolved]
  - Diabetic ketoacidosis [Not Recovered/Not Resolved]
  - Vaginal infection [Not Recovered/Not Resolved]
  - Purulent discharge [Unknown]
  - Fall [Unknown]
  - Pain [Not Recovered/Not Resolved]
  - Vulvovaginal erythema [Not Recovered/Not Resolved]

NARRATIVE: CASE EVENT DATE: 2018
